FAERS Safety Report 6295952-1 (Version None)
Quarter: 2009Q3

REPORT INFORMATION
  Report Type: 
  Country: None (occurrence: None)
  Receive Date: 20090803
  Receipt Date: 20090803
  Transmission Date: 20100115
  Serious: Yes (Other)
  Sender: FDA-Public Use
  Company Number: None

PATIENT
  Age: 63 Year
  Sex: Female
  Weight: 58.9676 kg

DRUGS (2)
  1. ALTACE [Suspect]
     Indication: HYPERTENSION
     Dosage: 5MG ONCE DAILY
  2. LIPITOR [Concomitant]

REACTIONS (5)
  - ATROPHY [None]
  - DEMENTIA [None]
  - SCAR [None]
  - SEGMENTED HYALINISING VASCULITIS [None]
  - SKIN HYPOPIGMENTATION [None]
